FAERS Safety Report 23949932 (Version 1)
Quarter: 2024Q2

REPORT INFORMATION
  Report Type: Spontaneous
  Country: JP (occurrence: JP)
  Receive Date: 20240607
  Receipt Date: 20240607
  Transmission Date: 20240716
  Serious: Yes (Hospitalization)
  Sender: FDA-Public Use
  Company Number: JP-MYLANLABS-2024M1051146

PATIENT
  Age: 8 Decade
  Sex: Male

DRUGS (4)
  1. PREGABALIN [Suspect]
     Active Substance: PREGABALIN
     Indication: Trigeminal palsy
     Route: 065
  2. ACYCLOVIR [Suspect]
     Active Substance: ACYCLOVIR
     Indication: Ophthalmic herpes zoster
     Dosage: 750 MILLIGRAM, QD
     Route: 042
  3. ACYCLOVIR [Suspect]
     Active Substance: ACYCLOVIR
     Dosage: 500 MILLIGRAM, QD
     Route: 042
  4. GATIFLOXACIN [Concomitant]
     Active Substance: GATIFLOXACIN
     Indication: Evidence based treatment
     Route: 047

REACTIONS (1)
  - Drug ineffective [Unknown]
